FAERS Safety Report 24283254 (Version 1)
Quarter: 2024Q3

REPORT INFORMATION
  Report Type: Spontaneous
  Country: GB (occurrence: GB)
  Receive Date: 20240904
  Receipt Date: 20240904
  Transmission Date: 20241017
  Serious: Yes (Hospitalization, Other)
  Sender: ELI LILLY AND CO
  Company Number: None

PATIENT
  Sex: Male

DRUGS (1)
  1. MOUNJARO [Suspect]
     Active Substance: TIRZEPATIDE
     Indication: Weight control
     Dosage: UNK UNK, UNKNOWN
     Route: 065
     Dates: start: 20240729, end: 20240823

REACTIONS (5)
  - Cholelithiasis [Not Recovered/Not Resolved]
  - Jaundice cholestatic [Unknown]
  - Pyrexia [Unknown]
  - Faeces pale [Unknown]
  - Chromaturia [Unknown]

NARRATIVE: CASE EVENT DATE: 20240819
